FAERS Safety Report 4365120-9 (Version None)
Quarter: 2004Q2

REPORT INFORMATION
  Report Type: 
  Country: None (occurrence: None)
  Receive Date: 20040520
  Receipt Date: 20040511
  Transmission Date: 20050107
  Serious: Yes (Hospitalization)
  Sender: FDA-Public Use
  Company Number: GBWYE757913MAY04

PATIENT
  Age: 63 Year
  Sex: Male

DRUGS (2)
  1. ADVIL [Suspect]
     Dosage: 400 MG 3X PER 1 DAY
     Route: 048
     Dates: start: 19970101, end: 20040324
  2. CELECOXIB (CELECOXIB, 0) [Suspect]
     Dosage: 100 MG 2X PER 1 DAY
     Route: 048
     Dates: start: 20040319, end: 20040324

REACTIONS (4)
  - DEHYDRATION [None]
  - NAUSEA [None]
  - RENAL IMPAIRMENT [None]
  - VOMITING [None]
